FAERS Safety Report 11189375 (Version 2)
Quarter: 2015Q3

REPORT INFORMATION
  Report Type: Spontaneous
  Country: JP (occurrence: JP)
  Receive Date: 20150615
  Receipt Date: 20150915
  Transmission Date: 20151125
  Serious: Yes (Life-Threatening, Hospitalization, Other)
  Sender: FDA-Public Use
  Company Number: JP-PFIZER INC-2015195297

PATIENT
  Age: 83 Year
  Sex: Female
  Weight: 51 kg

DRUGS (10)
  1. BAYASPIRIN [Concomitant]
     Active Substance: ASPIRIN
     Dosage: 100 MG, 1X/DAY
     Route: 048
  2. AMLODIN [Concomitant]
     Active Substance: AMLODIPINE BESYLATE
     Dosage: 7.5 MG, 1X/DAY
     Route: 048
  3. PRAVASTATIN NA [Concomitant]
     Dosage: 10 MG, 1X/DAY
     Route: 048
  4. SELBEX [Concomitant]
     Active Substance: TEPRENONE
     Dosage: 0.5 G, 2X/DAY
     Route: 048
  5. ULTIBRO [Concomitant]
     Active Substance: GLYCOPYRRONIUM\INDACATEROL
     Dosage: UNK UNK, 1X/DAY
     Route: 055
  6. PRIMPERAN [Concomitant]
     Active Substance: METOCLOPRAMIDE HYDROCHLORIDE
     Indication: PROPHYLAXIS OF NAUSEA AND VOMITING
     Dosage: 5 MG, 3X/DAY
     Route: 048
     Dates: start: 20150524, end: 20150603
  7. XALKORI [Suspect]
     Active Substance: CRIZOTINIB
     Indication: NON-SMALL CELL LUNG CANCER
     Dosage: 250 MG, 2X/DAY
     Route: 048
     Dates: start: 20150523, end: 20150604
  8. CANDESARTAN [Concomitant]
     Active Substance: CANDESARTAN
     Dosage: 4 MG, 1X/DAY
     Route: 048
  9. ULCERLMIN [Concomitant]
     Active Substance: SUCRALFATE
     Dosage: 10 ML, 3X/DAY
     Route: 048
  10. OMEPRAL [Concomitant]
     Active Substance: OMEPRAZOLE
     Dosage: 20 MG, 1X/DAY
     Route: 048

REACTIONS (8)
  - Urinary retention [Recovering/Resolving]
  - Nasopharyngitis [Unknown]
  - Oedema [Recovering/Resolving]
  - Pulmonary congestion [Recovering/Resolving]
  - Electrolyte imbalance [Recovering/Resolving]
  - Cardiac failure [Unknown]
  - Nausea [Recovered/Resolved]
  - Blood creatinine increased [Unknown]

NARRATIVE: CASE EVENT DATE: 2015
